FAERS Safety Report 7060154-8 (Version None)
Quarter: 2010Q4

REPORT INFORMATION
  Report Type: 
  Country: None (occurrence: None)
  Receive Date: 20101025
  Receipt Date: 20101015
  Transmission Date: 20110411
  Serious: Yes (Other)
  Sender: FDA-Public Use
  Company Number: PHHO2010US16007

PATIENT
  Sex: Male
  Weight: 67.12 kg

DRUGS (8)
  1. ZOLEDRONATE T29581+ [Suspect]
     Indication: MULTIPLE MYELOMA
     Dosage: 3.5MG
     Route: 042
     Dates: start: 20100113, end: 20100630
  2. CALCIUM [Concomitant]
  3. VITAMIN D [Concomitant]
  4. NEURONTIN [Concomitant]
  5. VICODIN [Concomitant]
  6. ASPIRIN [Concomitant]
  7. EXFORGE [Concomitant]
     Indication: HYPERTENSION
  8. PROTONIX [Concomitant]
     Indication: GASTROOESOPHAGEAL REFLUX DISEASE

REACTIONS (1)
  - OSTEONECROSIS OF JAW [None]
